FAERS Safety Report 17716247 (Version 1)
Quarter: 2020Q2

REPORT INFORMATION
  Report Type: Spontaneous
  Country: US (occurrence: US)
  Receive Date: 20200428
  Receipt Date: 20200428
  Transmission Date: 20200714
  Serious: No
  Sender: FDA-Public Use
  Company Number: US-SENTYNL THERAPEUTICS, INC.  -2083215

PATIENT
  Age: 58 Year
  Sex: Female

DRUGS (3)
  1. LEVORPHANOL TARTRATE. [Suspect]
     Active Substance: LEVORPHANOL TARTRATE
     Indication: TRIGEMINAL NERVE DISORDER
     Route: 048
     Dates: start: 20190617, end: 20191104
  2. DIAZEPAM. [Concomitant]
     Active Substance: DIAZEPAM
  3. CYMBALTA [Concomitant]
     Active Substance: DULOXETINE HYDROCHLORIDE

REACTIONS (2)
  - Withdrawal syndrome [Unknown]
  - Product dose omission [Unknown]
